FAERS Safety Report 9690053 (Version 1)
Quarter: 2013Q4

REPORT INFORMATION
  Report Type: Spontaneous
  Country: GB (occurrence: GB)
  Receive Date: 20131115
  Receipt Date: 20131115
  Transmission Date: 20140711
  Serious: Yes (Death)
  Sender: FDA-Public Use
  Company Number: GB-RANBAXY-2013R1-75003

PATIENT
  Sex: 0

DRUGS (2)
  1. QUETIAPINE [Suspect]
     Indication: BIPOLAR DISORDER
     Dosage: UNK
     Route: 064
  2. SERTRALINE [Suspect]
     Indication: BIPOLAR DISORDER
     Dosage: UNK
     Route: 064

REACTIONS (1)
  - Stillbirth [Fatal]
